FAERS Safety Report 9934794 (Version 1)
Quarter: 2014Q1

REPORT INFORMATION
  Report Type: Spontaneous
  Country: DK (occurrence: DK)
  Receive Date: 20140228
  Receipt Date: 20140228
  Transmission Date: 20141002
  Serious: Yes (Death, Other)
  Sender: FDA-Public Use
  Company Number: DK-TAKEDA-2014TJP001960

PATIENT
  Age: 78 Year
  Sex: Male

DRUGS (1)
  1. TAKEPRON CAPSULES 30 [Suspect]
     Dosage: UNK

REACTIONS (2)
  - Death [Fatal]
  - Subacute cutaneous lupus erythematosus [Unknown]
